FAERS Safety Report 8015451-6 (Version None)
Quarter: 2011Q4

REPORT INFORMATION
  Report Type: 
  Country: None (occurrence: None)
  Receive Date: 20111230
  Receipt Date: 20111219
  Transmission Date: 20120403
  Serious: Yes (Hospitalization)
  Sender: FDA-Public Use
  Company Number: US-BAYER-201038021NA

PATIENT
  Age: 21 Year
  Sex: Female
  Weight: 99.773 kg

DRUGS (6)
  1. YASMIN [Suspect]
     Indication: CONTRACEPTION
     Route: 048
     Dates: start: 20061201, end: 20070701
  2. YASMIN [Suspect]
     Indication: POLYCYSTIC OVARIES
     Dosage: UNK
     Dates: start: 20030101, end: 20060407
  3. YASMIN [Suspect]
     Indication: MENSTRUAL CYCLE MANAGEMENT
  4. METFORMIN HCL [Concomitant]
     Dosage: UNK
     Dates: start: 20000101
  5. VICODIN [Concomitant]
  6. YASMIN [Suspect]
     Indication: ACNE
     Route: 048
     Dates: start: 20050701, end: 20060401

REACTIONS (3)
  - DEEP VEIN THROMBOSIS [None]
  - DEPRESSION [None]
  - MENTAL DISORDER [None]
